FAERS Safety Report 20619657 (Version 1)
Quarter: 2022Q1

REPORT INFORMATION
  Report Type: Report from Study
  Country: CO (occurrence: CO)
  Receive Date: 20220322
  Receipt Date: 20220322
  Transmission Date: 20220423
  Serious: Yes (Death, Hospitalization)
  Sender: FDA-Public Use
  Company Number: CO-UCBSA-2022011022

PATIENT
  Age: 80 Year
  Sex: Male

DRUGS (2)
  1. ROTIGOTINE [Suspect]
     Active Substance: ROTIGOTINE
     Indication: Parkinson^s disease
     Dosage: 12 MILLIGRAM, ONCE DAILY (QD)
     Route: 062
     Dates: start: 20190613, end: 20211221
  2. CARBIDOPA\LEVODOPA [Concomitant]
     Active Substance: CARBIDOPA\LEVODOPA
     Indication: Parkinson^s disease
     Dosage: 25/250MG
     Route: 048
     Dates: end: 20211221

REACTIONS (3)
  - Liver disorder [Fatal]
  - General physical health deterioration [Fatal]
  - Palliative care [Unknown]

NARRATIVE: CASE EVENT DATE: 20211213
